FAERS Safety Report 8082801-4 (Version None)
Quarter: 2012Q1

REPORT INFORMATION
  Report Type: 
  Country: None (occurrence: None)
  Receive Date: 20120127
  Receipt Date: 20110212
  Transmission Date: 20120608
  Serious: No
  Sender: FDA-Public Use
  Company Number: US-ABBOTT-11P-163-0705067-00

PATIENT
  Age: 38 Year
  Sex: Female

DRUGS (5)
  1. PREVACID [Concomitant]
     Indication: DYSPEPSIA
     Dosage: 1 TAB A DAY
  2. ONDANSETRON HCL [Concomitant]
     Indication: NAUSEA
  3. HUMIRA [Suspect]
     Indication: CROHN'S DISEASE
     Dates: start: 20100901
  4. LOMOTIL [Concomitant]
     Indication: DIARRHOEA
  5. CREON [Concomitant]
     Indication: PANCREATITIS
     Dosage: 1 TAB A DAY

REACTIONS (3)
  - EAR INFECTION [None]
  - UPPER RESPIRATORY TRACT INFECTION [None]
  - NASOPHARYNGITIS [None]
